FAERS Safety Report 9239145 (Version 2)
Quarter: 2013Q2

REPORT INFORMATION
  Report Type: Spontaneous
  Country: US (occurrence: US)
  Receive Date: 20130418
  Receipt Date: 20130527
  Transmission Date: 20140414
  Serious: No
  Sender: FDA-Public Use
  Company Number: US-009507513-1304USA009031

PATIENT
  Sex: Female
  Weight: 74.83 kg

DRUGS (4)
  1. CLARITIN REDITABS 12HR [Suspect]
     Indication: SEASONAL ALLERGY
     Dosage: 5 MG, Q12H
     Route: 048
  2. CLARITIN REDITABS 12HR [Suspect]
     Indication: NASAL CONGESTION
  3. CLARITIN REDITABS 12HR [Suspect]
     Indication: EYE PRURITUS
  4. ASCORBIC ACID [Concomitant]
     Indication: PRODUCT USED FOR UNKNOWN INDICATION
     Dosage: UNK, UNKNOWN

REACTIONS (4)
  - Dyspnoea [Unknown]
  - Heart rate increased [Unknown]
  - Dehydration [Unknown]
  - Chills [Unknown]
